FAERS Safety Report 7274276-X (Version None)
Quarter: 2011Q1

REPORT INFORMATION
  Report Type: 
  Country: None (occurrence: None)
  Receive Date: 20110204
  Receipt Date: 20110121
  Transmission Date: 20110831
  Serious: Yes (Hospitalization, Other)
  Sender: FDA-Public Use
  Company Number: IN-RANBAXY-2010US-31146

PATIENT

DRUGS (2)
  1. ZIDOVUDINE [Suspect]
     Indication: ANTIRETROVIRAL THERAPY
     Dosage: 500 MG, UNK IN DIVIDED DOSES
     Route: 064
  2. ZIDOVUDINE [Suspect]
     Dosage: 2 MG/KG, QID
     Route: 048

REACTIONS (8)
  - DEVELOPMENTAL DELAY [None]
  - DRUG EXPOSURE DURING PREGNANCY [None]
  - LACTIC ACIDOSIS [None]
  - JAUNDICE [None]
  - DEHYDRATION [None]
  - HEPATOMEGALY [None]
  - DIARRHOEA [None]
  - FAECES DISCOLOURED [None]
